FAERS Safety Report 10487150 (Version 1)
Quarter: 2014Q3

REPORT INFORMATION
  Report Type: Spontaneous
  Country: US (occurrence: None)
  Receive Date: 20140908
  Receipt Date: 20140908
  Transmission Date: 20150326
  Serious: Yes (Other)
  Sender: FDA-Public Use
  Company Number: 404056

PATIENT
  Age: 65 Year
  Sex: Female
  Weight: 81.6 kg

DRUGS (4)
  1. VICTOZA [Suspect]
     Active Substance: LIRAGLUTIDE
     Indication: TYPE 1 DIABETES MELLITUS
     Route: 058
     Dates: start: 201303, end: 201311
  2. RAMIPRIL. [Concomitant]
     Active Substance: RAMIPRIL
  3. NOVOLOG [Concomitant]
     Active Substance: INSULIN ASPART
  4. LEVOTHYROXINE [Concomitant]
     Active Substance: LEVOTHYROXINE

REACTIONS (3)
  - Gastric ulcer [None]
  - Pancreatitis [None]
  - Off label use [None]

NARRATIVE: CASE EVENT DATE: 201303
